FAERS Safety Report 13343178 (Version 1)
Quarter: 2017Q1

REPORT INFORMATION
  Report Type: Spontaneous
  Country: US (occurrence: US)
  Receive Date: 20170316
  Receipt Date: 20170316
  Transmission Date: 20170428
  Serious: No
  Sender: FDA-Public Use
  Company Number: US-ALLERGAN-1636036US

PATIENT
  Sex: Female

DRUGS (2)
  1. OZURDEX [Suspect]
     Active Substance: DEXAMETHASONE
     Dosage: 0.7 MG, UNK
     Route: 031
     Dates: start: 20160225, end: 20160225
  2. OZURDEX [Suspect]
     Active Substance: DEXAMETHASONE
     Indication: VITRECTOMY
     Dosage: 0.7 MG, SINGLE
     Route: 031
     Dates: start: 20160225, end: 20160225

REACTIONS (3)
  - Vitreous haemorrhage [Not Recovered/Not Resolved]
  - Off label use [Unknown]
  - Product quality issue [Unknown]

NARRATIVE: CASE EVENT DATE: 20160225
